FAERS Safety Report 8457156-3 (Version None)
Quarter: 2012Q2

REPORT INFORMATION
  Report Type: 
  Country: None (occurrence: None)
  Receive Date: 20120621
  Receipt Date: 20120604
  Transmission Date: 20120825
  Serious: Yes (Death)
  Sender: FDA-Public Use
  Company Number: GB-BAYER-2012-060743

PATIENT
  Age: 51 Year
  Sex: Male

DRUGS (3)
  1. LEVOTHYROXINE SODIUM [Concomitant]
     Dosage: UNK
     Dates: end: 20061120
  2. ANAGRELIDE HCL [Concomitant]
     Dosage: UNK
     Route: 048
     Dates: start: 20070522, end: 20071114
  3. ASPIRIN [Suspect]
     Dosage: 75 MG, UNK
     Dates: start: 20010101

REACTIONS (4)
  - CEREBROVASCULAR DISORDER [None]
  - CEREBRAL HAEMORRHAGE [None]
  - CENTRAL NERVOUS SYSTEM HAEMORRHAGE [None]
  - HAEMORRHAGE [None]
